FAERS Safety Report 22082111 (Version 1)
Quarter: 2023Q1

REPORT INFORMATION
  Report Type: Spontaneous
  Country: SE (occurrence: SE)
  Receive Date: 20230310
  Receipt Date: 20230310
  Transmission Date: 20230418
  Serious: Yes (Life-Threatening)
  Sender: FDA-Public Use
  Company Number: None

PATIENT
  Age: 80 Year
  Sex: Female

DRUGS (16)
  1. ENALAPRIL [Suspect]
     Active Substance: ENALAPRIL
     Indication: Hypertension
     Dates: start: 20150922
  2. UREA [Concomitant]
     Active Substance: UREA
     Indication: Product used for unknown indication
     Dosage: 1VBTV
     Dates: start: 20200331
  3. LOCOID [Concomitant]
     Active Substance: HYDROCORTISONE BUTYRATE
     Indication: Product used for unknown indication
     Dosage: EO
     Dates: start: 20210322
  4. DESLORATADINE [Concomitant]
     Active Substance: DESLORATADINE
     Indication: Product used for unknown indication
     Dosage: 2VBTV
     Dates: start: 20200921, end: 20230103
  5. BENDROFLUMETHIAZIDE [Concomitant]
     Active Substance: BENDROFLUMETHIAZIDE
     Indication: Product used for unknown indication
     Dosage: 2X1
     Dates: start: 20181022, end: 20230105
  6. OMEPRAZOLE [Concomitant]
     Active Substance: OMEPRAZOLE
     Indication: Product used for unknown indication
     Dosage: 1X1IN2V
     Dates: start: 20190122
  7. OMEPRAZOLE [Concomitant]
     Active Substance: OMEPRAZOLE
     Dosage: 1VBTV
     Dates: start: 20190122
  8. ROPINIROLE [Concomitant]
     Active Substance: ROPINIROLE
     Indication: Product used for unknown indication
     Dates: start: 20171117
  9. ROPINIROLE [Concomitant]
     Active Substance: ROPINIROLE
     Dosage: 1X1
     Dates: start: 20171117, end: 20230103
  10. LORATADIN ORIFARM [Concomitant]
     Indication: Product used for unknown indication
     Dosage: 1X1TV
     Dates: start: 20200526
  11. naproxen bluefish [Concomitant]
     Indication: Product used for unknown indication
     Dosage: 1X2VB
     Dates: start: 20180619
  12. MOVICOL [Concomitant]
     Active Substance: POLYETHYLENE GLYCOL 3350\POTASSIUM CHLORIDE\SODIUM BICARBONATE\SODIUM CHLORIDE
     Indication: Product used for unknown indication
     Dosage: 1-2X1TV
     Dates: start: 20200526, end: 20230103
  13. furix [Concomitant]
     Indication: Product used for unknown indication
     Dosage: 2VB
     Dates: start: 20180713
  14. laktulos meda [Concomitant]
     Indication: Product used for unknown indication
     Dosage: 10-25X1TV
     Dates: start: 20220401
  15. NEUPRO [Concomitant]
     Active Substance: ROTIGOTINE
     Indication: Product used for unknown indication
     Dates: start: 20220201
  16. OXYCODONE HYDROCHLORIDE [Concomitant]
     Active Substance: OXYCODONE HYDROCHLORIDE
     Indication: Product used for unknown indication
     Dosage: 1VBMAX3/D
     Dates: start: 20201021

REACTIONS (1)
  - Angioedema [Recovered/Resolved]

NARRATIVE: CASE EVENT DATE: 20230103
